FAERS Safety Report 20562559 (Version 1)
Quarter: 2022Q1

REPORT INFORMATION
  Report Type: Spontaneous
  Country: US (occurrence: US)
  Receive Date: 20220307
  Receipt Date: 20220307
  Transmission Date: 20220423
  Serious: No
  Sender: FDA-Public Use
  Company Number: US-BRISTOL-MYERS SQUIBB COMPANY-BMS-2022-030746

PATIENT
  Age: 86 Year
  Sex: Male
  Weight: 72.121 kg

DRUGS (1)
  1. HYDREA [Suspect]
     Active Substance: HYDROXYUREA
     Indication: Myeloproliferative neoplasm
     Dosage: 1500 MILLIGRAM, QD
     Route: 065
     Dates: end: 202201

REACTIONS (4)
  - Mouth ulceration [Recovering/Resolving]
  - Pain [Unknown]
  - Haemoglobin increased [Not Recovered/Not Resolved]
  - Intentional product use issue [Unknown]

NARRATIVE: CASE EVENT DATE: 20220101
